FAERS Safety Report 7061394-4 (Version None)
Quarter: 2010Q4

REPORT INFORMATION
  Report Type: 
  Country: None (occurrence: None)
  Receive Date: 20101026
  Receipt Date: 20101021
  Transmission Date: 20110411
  Serious: Yes (Death, Hospitalization, Other)
  Sender: FDA-Public Use
  Company Number: PHHY2010AU27489

PATIENT
  Sex: Female

DRUGS (13)
  1. ACLASTA [Suspect]
     Dosage: 5 MG/100 ML
     Route: 042
     Dates: start: 20100420
  2. PREDNISONE [Concomitant]
     Dosage: 25 MG, THEN TAPER
     Route: 048
  3. OXYCONTIN [Concomitant]
     Dosage: 30 MG, BID
     Route: 048
  4. CLOPIDOGREL [Concomitant]
     Dosage: 75 MG, DAILY
     Route: 048
  5. NEXIUM [Concomitant]
     Dosage: 40 MG, DAILY
     Route: 048
  6. CITALOPRAM HYDROBROMIDE [Concomitant]
     Dosage: 20 MG, DAILY
     Route: 048
  7. VERAPAMIL [Concomitant]
     Dosage: 40 MG , DAILY
     Route: 048
  8. SIMVASTATIN [Concomitant]
     Dosage: 80 MG, DAILY
     Route: 048
  9. SERETIDE 250/25 [Concomitant]
     Dosage: 2 PUFFS BD
  10. SPIRIVA [Concomitant]
     Dosage: 18 MCG, DAILY
  11. MAXOLON [Concomitant]
     Dosage: 10 MG, TID PRN
     Route: 048
  12. ENDONE [Concomitant]
     Dosage: 5 MG, QID PRN
     Route: 048
  13. INFLUENZA VACCINE [Concomitant]

REACTIONS (12)
  - BLOOD CREATINE PHOSPHOKINASE INCREASED [None]
  - CEREBROVASCULAR ACCIDENT [None]
  - CHRONIC OBSTRUCTIVE PULMONARY DISEASE [None]
  - DEATH [None]
  - DYSLIPIDAEMIA [None]
  - DYSPNOEA [None]
  - GASTROOESOPHAGEAL REFLUX DISEASE [None]
  - HYPERTENSION [None]
  - INCREASED UPPER AIRWAY SECRETION [None]
  - MALAISE [None]
  - NEPHRECTOMY [None]
  - PYREXIA [None]
